FAERS Safety Report 8479560-X (Version None)
Quarter: 2012Q2

REPORT INFORMATION
  Report Type: 
  Country: None (occurrence: None)
  Receive Date: 20120629
  Receipt Date: 20120625
  Transmission Date: 20120825
  Serious: Yes (Other)
  Sender: FDA-Public Use
  Company Number: US-PFIZER INC-2012123318

PATIENT
  Sex: Female
  Weight: 81.633 kg

DRUGS (2)
  1. LEVOXYL [Suspect]
     Indication: HYPOTHYROIDISM
     Dosage: 50 MCG, HALF A TABLET, DAILY
     Route: 048
     Dates: end: 20120510
  2. OXYCODONE [Concomitant]
     Indication: PAIN
     Dosage: 5 MG OR 10 MG, AS NEEDED

REACTIONS (9)
  - DYSPNOEA [None]
  - TREMOR [None]
  - INSOMNIA [None]
  - CARDIAC DISORDER [None]
  - OVERDOSE [None]
  - MALAISE [None]
  - PALPITATIONS [None]
  - HEPATIC ENZYME INCREASED [None]
  - HYPERTHYROIDISM [None]
